FAERS Safety Report 4958983-7 (Version None)
Quarter: 2006Q1

REPORT INFORMATION
  Report Type: 
  Country: None (occurrence: None)
  Receive Date: 20060324
  Receipt Date: 20060317
  Transmission Date: 20060701
  Serious: Yes (Other)
  Sender: FDA-Public Use
  Company Number: 006960

PATIENT
  Age: 75 Year
  Sex: Female

DRUGS (4)
  1. MEDROXYPROGESTERONE ACETATE [Suspect]
     Dates: start: 19850101, end: 20010101
  2. PREMARIN [Suspect]
     Dates: start: 19850101, end: 20010101
  3. PROVERA [Suspect]
     Dates: start: 19850101, end: 20010101
  4. PREMPRO [Suspect]
     Dates: start: 19850101, end: 20010101

REACTIONS (3)
  - BREAST CANCER FEMALE [None]
  - BREAST CANCER IN SITU [None]
  - PROGESTERONE RECEPTOR ASSAY POSITIVE [None]
